FAERS Safety Report 14483012 (Version 4)
Quarter: 2018Q2

REPORT INFORMATION
  Report Type: Report from Study
  Country: US (occurrence: US)
  Receive Date: 20180203
  Receipt Date: 20180424
  Transmission Date: 20180711
  Serious: Yes (Hospitalization, Other)
  Sender: FDA-Public Use
  Company Number: US-TESARO, INC-US-2018TSO00551

PATIENT

DRUGS (6)
  1. IRON [Concomitant]
     Active Substance: IRON
     Indication: PRODUCT USED FOR UNKNOWN INDICATION
     Dosage: 325 MG, QD
     Route: 048
  2. ZEJULA [Suspect]
     Active Substance: NIRAPARIB
     Dosage: 200 MG, QD
     Route: 048
  3. ZEJULA [Suspect]
     Active Substance: NIRAPARIB
     Dosage: 200 MG, QD
     Route: 048
  4. ZEJULA [Suspect]
     Active Substance: NIRAPARIB
     Indication: MALIGNANT PERITONEAL NEOPLASM
     Dosage: 200 MG, QD
     Route: 048
     Dates: start: 20171112
  5. MULTIVITAMIN                       /07504101/ [Concomitant]
     Active Substance: VITAMINS
     Indication: PRODUCT USED FOR UNKNOWN INDICATION
     Dosage: 1 DF, QD
     Route: 048
  6. VITAMIN B12 [Concomitant]
     Active Substance: CYANOCOBALAMIN
     Indication: PRODUCT USED FOR UNKNOWN INDICATION
     Dosage: ONE INJECTABLE EVERY MONTH
     Route: 030

REACTIONS (14)
  - Hypoaesthesia [Not Recovered/Not Resolved]
  - Oedema peripheral [Unknown]
  - Carbohydrate antigen 125 increased [Recovering/Resolving]
  - Walking aid user [Unknown]
  - Weight decreased [Unknown]
  - Hypertension [Unknown]
  - Ascites [Not Recovered/Not Resolved]
  - Disease progression [Not Recovered/Not Resolved]
  - Nodule [Unknown]
  - Muscle spasms [Not Recovered/Not Resolved]
  - Emotional distress [Unknown]
  - Catheter management [Not Recovered/Not Resolved]
  - Abdominal distension [Recovering/Resolving]
  - Positron emission tomogram abnormal [Recovered/Resolved]

NARRATIVE: CASE EVENT DATE: 20171213
